FAERS Safety Report 15631625 (Version 1)
Quarter: 2018Q4

REPORT INFORMATION
  Report Type: Spontaneous
  Country: CA (occurrence: CA)
  Receive Date: 20181119
  Receipt Date: 20181119
  Transmission Date: 20190205
  Serious: Yes (Hospitalization)
  Sender: FDA-Public Use
  Company Number: CA-JNJFOC-20181115642

PATIENT
  Age: 22 Year
  Sex: Female

DRUGS (3)
  1. MOTRIN [Suspect]
     Active Substance: IBUPROFEN
     Route: 048
  2. ASPIRIN. [Suspect]
     Active Substance: ASPIRIN
     Indication: PRODUCT USED FOR UNKNOWN INDICATION
     Dosage: AS REQUIRED
     Route: 065
  3. MOTRIN [Suspect]
     Active Substance: IBUPROFEN
     Indication: PRODUCT USED FOR UNKNOWN INDICATION
     Route: 048

REACTIONS (5)
  - Rash [Recovered/Resolved]
  - Hepatic function abnormal [Recovered/Resolved]
  - Jaundice cholestatic [Recovered/Resolved]
  - Bleeding time prolonged [Recovered/Resolved]
  - Pyrexia [Recovered/Resolved]
